FAERS Safety Report 4268717-X (Version None)
Quarter: 2004Q1

REPORT INFORMATION
  Report Type: 
  Country: None (occurrence: None)
  Receive Date: 20040112
  Receipt Date: 20040112
  Transmission Date: 20041129
  Serious: No
  Sender: FDA-Public Use
  Company Number: None

PATIENT
  Age: 12 Year
  Sex: Male
  Weight: 72 kg

DRUGS (2)
  1. ACYCLOVIR SODIUM [Suspect]
     Indication: ENCEPHALITIS
     Dosage: 1000 G  Q8 HOURS IV
     Route: 042
     Dates: start: 20031219, end: 20031221
  2. ACYCLOVIR SODIUM [Suspect]

REACTIONS (1)
  - INJECTION SITE ERYTHEMA [None]
